FAERS Safety Report 4654571-0 (Version None)
Quarter: 2005Q2

REPORT INFORMATION
  Report Type: 
  Country: None (occurrence: None)
  Receive Date: 20050504
  Receipt Date: 20050504
  Transmission Date: 20051028
  Serious: Yes (Hospitalization)
  Sender: FDA-Public Use
  Company Number: None

PATIENT
  Age: 63 Year
  Sex: Male
  Weight: 83 kg

DRUGS (2)
  1. LOVENOX [Suspect]
     Indication: MYOCARDIAL INFARCTION
     Dosage: SUBCUTANEOUS
     Route: 058
     Dates: start: 20040411, end: 20040411
  2. HEPARIN [Suspect]
     Indication: MYOCARDIAL INFARCTION
     Dosage: 1000 UNITS / INTRAVENOUS
     Route: 042
     Dates: start: 20040413, end: 20040414

REACTIONS (5)
  - ANTI-PLATELET ANTIBODY POSITIVE [None]
  - BRADYCARDIA [None]
  - HEPARIN-INDUCED THROMBOCYTOPENIA [None]
  - HYPOTENSION [None]
  - MYOCARDIAL INFARCTION [None]
